FAERS Safety Report 24154123 (Version 1)
Quarter: 2024Q3

REPORT INFORMATION
  Report Type: Report from Study
  Country: CA (occurrence: None)
  Receive Date: 20240730
  Receipt Date: 20240730
  Transmission Date: 20241017
  Serious: Yes (Other)
  Sender: ASTRAZENECA
  Company Number: 2024A070997

PATIENT
  Sex: Female

DRUGS (6)
  1. TEZEPELUMAB [Suspect]
     Active Substance: TEZEPELUMAB
     Indication: Asthma
     Route: 058
     Dates: start: 20231123, end: 20240215
  2. TEZEPELUMAB [Suspect]
     Active Substance: TEZEPELUMAB
     Indication: Asthma
     Route: 058
     Dates: start: 20231123, end: 20240215
  3. SPIRIVA RESPIMAT [Concomitant]
     Active Substance: TIOTROPIUM BROMIDE
     Dosage: 2.5 MCG, 2 PUFFS DAILY
  4. ZENHALE [Concomitant]
     Active Substance: FORMOTEROL FUMARATE\MOMETASONE FUROATE
     Dosage: 200MCG/5MCG
  5. VENTOLIN [Concomitant]
     Active Substance: ALBUTEROL SULFATE
  6. FASENRA [Concomitant]
     Active Substance: BENRALIZUMAB
     Dosage: 8 WEEKS

REACTIONS (7)
  - Fluid retention [Unknown]
  - Peripheral swelling [Unknown]
  - Joint swelling [Unknown]
  - Asthma [Unknown]
  - Dyspnoea [Unknown]
  - Migraine [Unknown]
  - Drug ineffective [Unknown]
